FAERS Safety Report 14141064 (Version 1)
Quarter: 2017Q4

REPORT INFORMATION
  Report Type: Spontaneous
  Country: IT (occurrence: IT)
  Receive Date: 20171030
  Receipt Date: 20171030
  Transmission Date: 20180321
  Serious: Yes (Other)
  Sender: FDA-Public Use
  Company Number: IT-TEVA-784982ACC

PATIENT
  Age: 52 Year
  Sex: Female

DRUGS (3)
  1. LEXOTAN - ROCHE S.P.A. [Suspect]
     Active Substance: BROMAZEPAM
     Indication: INTENTIONAL SELF-INJURY
     Dosage: 15 ML TOTAL
     Route: 048
     Dates: start: 20160506, end: 20160506
  2. CITALOPRAM [Suspect]
     Active Substance: CITALOPRAM HYDROBROMIDE
     Indication: INTENTIONAL SELF-INJURY
     Dosage: 28 DF TOTAL
     Route: 048
     Dates: start: 20160506, end: 20160506
  3. RIVOTRIL [Suspect]
     Active Substance: CLONAZEPAM
     Indication: INTENTIONAL SELF-INJURY
     Dosage: 20 DF TOTAL
     Route: 048
     Dates: start: 20160506, end: 20160506

REACTIONS (3)
  - Drug abuse [Recovering/Resolving]
  - Intentional self-injury [Recovering/Resolving]
  - Sopor [Recovering/Resolving]

NARRATIVE: CASE EVENT DATE: 20160506
